FAERS Safety Report 15626200 (Version 1)
Quarter: 2018Q4

REPORT INFORMATION
  Report Type: Spontaneous
  Country: GB (occurrence: GB)
  Receive Date: 20181116
  Receipt Date: 20181116
  Transmission Date: 20190205
  Serious: Yes (Other)
  Sender: FDA-Public Use
  Company Number: GB-009507513-1811GBR005104

PATIENT
  Age: 72 Year
  Sex: Female
  Weight: 86 kg

DRUGS (18)
  1. CETIRIZINE HYDROCHLORIDE. [Concomitant]
     Active Substance: CETIRIZINE HYDROCHLORIDE
     Dosage: 1 -2 DAILY
     Dates: start: 20171004
  2. LERCANIDIPINE HYDROCHLORIDE [Concomitant]
     Active Substance: LERCANIDIPINE HYDROCHLORIDE
     Dates: start: 20171030
  3. ELLESTE-SOLO [Concomitant]
     Dates: start: 20171004
  4. MONTELUKAST SODIUM. [Suspect]
     Active Substance: MONTELUKAST SODIUM
     Dates: start: 20181010
  5. IRBESARTAN. [Concomitant]
     Active Substance: IRBESARTAN
     Dates: start: 20171004
  6. TRAMADOL HYDROCHLORIDE. [Concomitant]
     Active Substance: TRAMADOL HYDROCHLORIDE
     Dosage: ONE OR TWO TO BE TAKEN FOUR TIMES A DAY
     Dates: start: 20171004
  7. BUMETANIDE. [Concomitant]
     Active Substance: BUMETANIDE
     Dosage: MORNING AND AT 3PM
     Dates: start: 20171004
  8. ACETAMINOPHEN. [Concomitant]
     Active Substance: ACETAMINOPHEN
     Dates: start: 20171004
  9. SYMBICORT [Concomitant]
     Active Substance: BUDESONIDE\FORMOTEROL FUMARATE DIHYDRATE
     Route: 055
     Dates: start: 20171004, end: 20181010
  10. ALBUTEROL. [Concomitant]
     Active Substance: ALBUTEROL
     Dosage: TWO PUFFS FOUR TIMES A DAY WHEN REQUIRED (AS NECESSARY)
     Route: 055
     Dates: start: 20171004
  11. MONTELUKAST SODIUM. [Concomitant]
     Active Substance: MONTELUKAST SODIUM
     Dosage: NIGHT
     Dates: start: 20181010
  12. DOXYCYCLINE. [Concomitant]
     Active Substance: DOXYCYCLINE
     Dosage: TWO NOW THEN ONE DAILY RESCUE PACK
     Dates: start: 20171004
  13. PREDNISOLONE. [Concomitant]
     Active Substance: PREDNISOLONE
     Dosage: TAKE TWO DAILY UNTIL REVIEW WITH GP IN TWO WEEKS
     Dates: start: 20171004
  14. SERETIDE [Concomitant]
     Active Substance: FLUTICASONE PROPIONATE\SALMETEROL XINAFOATE
     Route: 055
     Dates: start: 20181010
  15. INCRUSE ELLIPTA [Concomitant]
     Active Substance: UMECLIDINIUM BROMIDE
     Route: 055
     Dates: start: 20171113
  16. ACCRETE D3 [Concomitant]
     Dates: start: 20171004
  17. NYSTAN [Concomitant]
     Active Substance: NYSTATIN
     Dosage: 4 MILLILITER, QD
     Dates: start: 20180913, end: 20180923
  18. AMITRIPTYLINE HYDROCHLORIDE. [Concomitant]
     Active Substance: AMITRIPTYLINE HYDROCHLORIDE
     Dosage: NIGHT
     Dates: start: 20171004

REACTIONS (3)
  - Nausea [Recovered/Resolved]
  - Rash [Recovering/Resolving]
  - Oedema peripheral [Recovering/Resolving]

NARRATIVE: CASE EVENT DATE: 20181010
